FAERS Safety Report 23522504 (Version 1)
Quarter: 2024Q1

REPORT INFORMATION
  Report Type: Report from Study
  Country: US (occurrence: US)
  Receive Date: 20240214
  Receipt Date: 20240214
  Transmission Date: 20240410
  Serious: Yes (Hospitalization, Other)
  Sender: FDA-Public Use
  Company Number: US-SA-SAC20230615000781

PATIENT
  Age: 71 Year
  Sex: Male

DRUGS (1)
  1. DUPILUMAB [Suspect]
     Active Substance: DUPILUMAB
     Indication: Neurodermatitis
     Dosage: 300 MG, QOW
     Route: 058
     Dates: start: 20230405

REACTIONS (6)
  - Nephrolithiasis [Recovering/Resolving]
  - Acute kidney injury [Recovering/Resolving]
  - Accidental exposure to product [Unknown]
  - Exposure via skin contact [Unknown]
  - Dehydration [Recovering/Resolving]
  - Fluid intake reduced [Recovering/Resolving]

NARRATIVE: CASE EVENT DATE: 20230627
